FAERS Safety Report 25156277 (Version 1)
Quarter: 2025Q2

REPORT INFORMATION
  Report Type: Spontaneous
  Country: ES (occurrence: ES)
  Receive Date: 20250403
  Receipt Date: 20250403
  Transmission Date: 20250716
  Serious: Yes (Death, Other)
  Sender: SHIONOGI
  Company Number: ES-PFIZER INC-PV202500034728

PATIENT
  Sex: Female

DRUGS (3)
  1. CEFIDEROCOL [Suspect]
     Active Substance: CEFIDEROCOL
     Indication: Klebsiella infection
  2. AVIBACTAM SODIUM\CEFTAZIDIME [Suspect]
     Active Substance: AVIBACTAM SODIUM\CEFTAZIDIME
     Indication: Klebsiella infection
  3. AZTREONAM [Suspect]
     Active Substance: AZTREONAM
     Indication: Klebsiella infection

REACTIONS (3)
  - Drug resistance [Fatal]
  - General physical health deterioration [Fatal]
  - Off label use [Unknown]
